FAERS Safety Report 4637197-4 (Version None)
Quarter: 2005Q2

REPORT INFORMATION
  Report Type: 
  Country: None (occurrence: None)
  Receive Date: 20050325
  Receipt Date: 20050113
  Transmission Date: 20051028
  Serious: No
  Sender: FDA-Public Use
  Company Number: USA040979802

PATIENT
  Age: 73 Year
  Sex: Male
  Weight: 80 kg

DRUGS (3)
  1. FORTEO [Suspect]
     Indication: OSTEOPOROSIS
     Dosage: 20 UG/1 DAY
     Dates: start: 20040928
  2. COUMADIN [Concomitant]
  3. FOSAMAX [Concomitant]

REACTIONS (2)
  - INJECTION SITE HAEMORRHAGE [None]
  - THINKING ABNORMAL [None]
